FAERS Safety Report 9902656 (Version 2)
Quarter: 2014Q1

REPORT INFORMATION
  Report Type: Spontaneous
  Country: US (occurrence: US)
  Receive Date: 20140217
  Receipt Date: 20140217
  Transmission Date: 20141002
  Serious: No
  Sender: FDA-Public Use
  Company Number: US-GILEAD-2011-0043682

PATIENT
  Sex: Female

DRUGS (2)
  1. LETAIRIS [Suspect]
     Indication: PRODUCT USED FOR UNKNOWN INDICATION
     Dosage: 10 UNK, UNK
     Route: 048
     Dates: start: 20110407
  2. VELETRI [Concomitant]

REACTIONS (10)
  - Dizziness [Unknown]
  - Dizziness [Recovered/Resolved]
  - Pain in jaw [Unknown]
  - Pain in extremity [Unknown]
  - Pain in extremity [Unknown]
  - Diarrhoea [Unknown]
  - Fatigue [Unknown]
  - Disorientation [Unknown]
  - Flushing [Unknown]
  - Nausea [Unknown]
